FAERS Safety Report 6241531-1 (Version None)
Quarter: 2009Q2

REPORT INFORMATION
  Report Type: 
  Country: None (occurrence: None)
  Receive Date: 20090623
  Receipt Date: 20040419
  Transmission Date: 20091009
  Serious: Yes (Hospitalization)
  Sender: FDA-Public Use
  Company Number: DE-ROCHE-360078

PATIENT
  Sex: Female

DRUGS (37)
  1. DACLIZUMAB [Suspect]
     Route: 042
     Dates: start: 20031117
  2. DACLIZUMAB [Suspect]
     Route: 042
     Dates: start: 20031201, end: 20040113
  3. MYCOPHENOLATE MOFETIL [Suspect]
     Dosage: DRUG: MYCOPHENOLAT MOFETIL
     Route: 048
     Dates: start: 20031118
  4. MYCOPHENOLATE MOFETIL [Suspect]
     Route: 048
     Dates: start: 20031120
  5. MYCOPHENOLATE MOFETIL [Suspect]
     Route: 048
     Dates: start: 20040216, end: 20040216
  6. MYCOPHENOLATE MOFETIL [Suspect]
     Dosage: DRUG: MYCOPHENOLAT MOFETIL
     Route: 048
     Dates: end: 20040217
  7. CYCLOSPORINE [Suspect]
     Dosage: DRUG REPORTED: CYCLOSPORINE
     Route: 048
     Dates: start: 20031118, end: 20031118
  8. CYCLOSPORINE [Suspect]
     Route: 048
     Dates: start: 20031119, end: 20031119
  9. CYCLOSPORINE [Suspect]
     Route: 048
     Dates: start: 20031120, end: 20031120
  10. CYCLOSPORINE [Suspect]
     Route: 048
     Dates: start: 20031121
  11. CYCLOSPORINE [Suspect]
     Route: 048
     Dates: start: 20031124, end: 20031124
  12. CYCLOSPORINE [Suspect]
     Route: 048
     Dates: start: 20031125
  13. CYCLOSPORINE [Suspect]
     Route: 048
     Dates: start: 20031128, end: 20031128
  14. CYCLOSPORINE [Suspect]
     Route: 048
     Dates: start: 20031129
  15. CYCLOSPORINE [Suspect]
     Route: 048
     Dates: start: 20031202
  16. CYCLOSPORINE [Suspect]
     Route: 048
     Dates: start: 20031230
  17. CYCLOSPORINE [Suspect]
     Route: 048
     Dates: start: 20040113
  18. CYCLOSPORINE [Suspect]
     Route: 048
     Dates: start: 20040217
  19. CYCLOSPORINE [Suspect]
     Route: 048
     Dates: start: 20040414
  20. TACROLIMUS [Suspect]
     Route: 048
     Dates: start: 20060101
  21. METHYLPREDNISOLONE [Suspect]
     Route: 042
     Dates: start: 20031117, end: 20031117
  22. METHYLPREDNISOLONE [Suspect]
     Route: 042
     Dates: start: 20031118, end: 20031118
  23. METHYLPREDNISOLONE [Suspect]
     Route: 042
     Dates: start: 20031119, end: 20031119
  24. METHYLPREDNISOLONE [Suspect]
     Route: 048
     Dates: start: 20031120
  25. METHYLPREDNISOLONE [Suspect]
     Route: 048
     Dates: start: 20031204
  26. METHYLPREDNISOLONE [Suspect]
     Route: 048
     Dates: start: 20040113
  27. METHYLPREDNISOLONE [Suspect]
     Route: 048
     Dates: start: 20040217
  28. METHYLPREDNISOLONE [Suspect]
     Route: 048
     Dates: start: 20041127
  29. PRAVASTATIN SODIUM [Concomitant]
     Route: 048
     Dates: start: 20031127
  30. VESDIL [Concomitant]
     Route: 048
     Dates: start: 20030101
  31. CEFAZOLIN [Concomitant]
     Route: 042
     Dates: start: 20031118, end: 20031120
  32. CIPROFLOXACIN [Concomitant]
     Route: 048
     Dates: start: 20031124, end: 20031201
  33. CLINDAMYCIN [Concomitant]
     Route: 048
     Dates: start: 20040229, end: 20040310
  34. GANCICLOVIR [Concomitant]
     Route: 048
     Dates: start: 20031119
  35. GANCICLOVIR [Concomitant]
     Route: 048
     Dates: start: 20031123
  36. GANCICLOVIR [Concomitant]
     Route: 048
     Dates: start: 20031125
  37. METRONIDAZOLE [Concomitant]
     Route: 048
     Dates: start: 20040229, end: 20040308

REACTIONS (3)
  - HAEMATOMA [None]
  - INFECTION [None]
  - LEUKOPENIA [None]
